FAERS Safety Report 8498814-4 (Version None)
Quarter: 2012Q3

REPORT INFORMATION
  Report Type: 
  Country: None (occurrence: None)
  Receive Date: 20120710
  Receipt Date: 20120627
  Transmission Date: 20120928
  Serious: Yes (Death, Hospitalization)
  Sender: FDA-Public Use
  Company Number: US-BRISTOL-MYERS SQUIBB COMPANY-15792658

PATIENT
  Age: 50 Year
  Sex: Female

DRUGS (1)
  1. YERVOY [Suspect]
     Indication: MALIGNANT MELANOMA
     Dosage: 2ND DOSE ON MAY11

REACTIONS (6)
  - PANCYTOPENIA [None]
  - DISSEMINATED INTRAVASCULAR COAGULATION [None]
  - RASH [None]
  - SEPSIS [None]
  - INTESTINAL PERFORATION [None]
  - DIARRHOEA [None]
